FAERS Safety Report 17588749 (Version 1)
Quarter: 2020Q1

REPORT INFORMATION
  Report Type: Spontaneous
  Country: BR (occurrence: BR)
  Receive Date: 20200327
  Receipt Date: 20200327
  Transmission Date: 20200409
  Serious: Yes (Death, Hospitalization, Other)
  Sender: FDA-Public Use
  Company Number: BR-GLENMARK PHARMACEUTICALS-2020GMK046742

PATIENT
  Age: 37 Year
  Sex: Female

DRUGS (5)
  1. MEROPENEM. [Suspect]
     Active Substance: MEROPENEM
     Indication: RHODOCOCCUS INFECTION
     Dosage: 1 GRAM, BID
     Route: 042
  2. COLISTIN [Concomitant]
     Active Substance: COLISTIN
     Indication: RHODOCOCCUS INFECTION
     Dosage: 2.5 MILLIGRAM/KILOGRAM, QD
     Route: 042
  3. TRIMETHOPRIM SULFAMETHOXAZOLE [Concomitant]
     Active Substance: SULFAMETHOXAZOLE\TRIMETHOPRIM
     Indication: RHODOCOCCUS INFECTION
     Dosage: 15 MILLIGRAM/KILOGRAM, QID (TRIMETHOPRIM)
     Route: 042
  4. LINEZOLID. [Suspect]
     Active Substance: LINEZOLID
     Indication: RHODOCOCCUS INFECTION
     Dosage: 600 MILLIGRAM, BID
     Route: 065
  5. AMIKACIN. [Suspect]
     Active Substance: AMIKACIN
     Indication: RHODOCOCCUS INFECTION
     Dosage: 15 MILLIGRAM/KILOGRAM, QD
     Route: 065

REACTIONS (2)
  - Multiple organ dysfunction syndrome [Fatal]
  - Drug ineffective [Unknown]
